FAERS Safety Report 4466027-9 (Version None)
Quarter: 2004Q3

REPORT INFORMATION
  Report Type: 
  Country: None (occurrence: None)
  Receive Date: 20040930
  Receipt Date: 20040930
  Transmission Date: 20050211
  Serious: Yes (Hospitalization)
  Sender: FDA-Public Use
  Company Number: None

PATIENT
  Age: 56 Year
  Sex: Male
  Weight: 63.2 kg

DRUGS (6)
  1. DOXORUBICIN [Suspect]
     Indication: PRIMARY MEDIASTINAL LARGE B-CELL LYMPHOMA
     Dosage: 90MG   JAN 03 - MAR INTRAVENOUS
     Route: 042
     Dates: start: 20040219, end: 20040729
  2. DOCUSATE SODIUM [Concomitant]
  3. ENOXAPARIN INJ [Concomitant]
  4. OMEPRAZOLE [Concomitant]
  5. SA [Concomitant]
  6. SODIUM CHLORIDE INJ [Concomitant]

REACTIONS (2)
  - CARDIAC FAILURE CONGESTIVE [None]
  - EJECTION FRACTION DECREASED [None]
